FAERS Safety Report 24965114 (Version 1)
Quarter: 2025Q1

REPORT INFORMATION
  Report Type: Spontaneous
  Country: US (occurrence: US)
  Receive Date: 20250213
  Receipt Date: 20250213
  Transmission Date: 20250408
  Serious: No
  Sender: DR REDDYS
  Company Number: US-DRL-USA-USA/2025/02/001808

PATIENT
  Age: 4 Year
  Sex: Female
  Weight: 17.2 kg

DRUGS (2)
  1. JAVYGTOR [Suspect]
     Active Substance: SAPROPTERIN DIHYDROCHLORIDE
     Indication: Phenylketonuria
     Dosage: DISSOLVE 4 POWDER PACKETS IN 20 ML OF WATER AND TAKE 350 MG ONCE DAILY WITH MEAL AS DIRECTED BY META
     Route: 048
  2. JAVYGTOR [Suspect]
     Active Substance: SAPROPTERIN DIHYDROCHLORIDE
     Indication: Hyperphenylalaninaemia

REACTIONS (2)
  - Product quality issue [Unknown]
  - Poor quality product administered [Unknown]
